FAERS Safety Report 4453021-7 (Version None)
Quarter: 2004Q3

REPORT INFORMATION
  Report Type: 
  Country: None (occurrence: None)
  Receive Date: 20040916
  Receipt Date: 20040908
  Transmission Date: 20050211
  Serious: Yes (Hospitalization, Other)
  Sender: FDA-Public Use
  Company Number: 2004230207US

PATIENT
  Sex: Female
  Weight: 90.7 kg

DRUGS (7)
  1. CELEBREX [Suspect]
     Indication: OSTEOARTHRITIS
     Dosage: 200 MG, BID, ORAL
     Route: 048
     Dates: start: 20040401, end: 20040720
  2. AVANDIA [Concomitant]
  3. GLUCOTROL XL [Concomitant]
  4. GLUCOPHAGE [Concomitant]
  5. HYZAAR [Concomitant]
  6. ZYRTEC [Concomitant]
  7. COREG [Concomitant]

REACTIONS (2)
  - ARTHRALGIA [None]
  - JOINT INJURY [None]
